FAERS Safety Report 4341195-8 (Version None)
Quarter: 2004Q1

REPORT INFORMATION
  Report Type: 
  Country: None (occurrence: None)
  Receive Date: 20040329
  Receipt Date: 20031205
  Transmission Date: 20041129
  Serious: No
  Sender: FDA-Public Use
  Company Number: 03P-163-0244158-00

PATIENT
  Sex: Female

DRUGS (8)
  1. HUMIRA [Suspect]
     Indication: RHEUMATOID ARTHRITIS
     Dosage: 40 MG, 1 IN 2 WK, SUBCUTANEOUS
     Route: 058
     Dates: start: 20031205
  2. METHOTREXATE SODIUM [Concomitant]
  3. PREDNISOLONE ACETATE [Concomitant]
  4. OXYCOCET [Concomitant]
  5. LANSOPRAZOLE [Concomitant]
  6. DIFLUNISAL [Concomitant]
  7. AZATHIOPRINE [Concomitant]
  8. CYCLOBENZAPRINE HYDROCHLORIDE [Concomitant]

REACTIONS (2)
  - INJECTION SITE PAIN [None]
  - INJECTION SITE SWELLING [None]
